FAERS Safety Report 16342976 (Version 1)
Quarter: 2019Q2

REPORT INFORMATION
  Report Type: Spontaneous
  Country: US (occurrence: US)
  Receive Date: 20190417
  Receipt Date: 20190417
  Transmission Date: 20190711
  Serious: No
  Sender: FDA-Public Use
  Company Number: None

PATIENT
  Age: 76 Year
  Sex: Male

DRUGS (4)
  1. IMATINIB 400MG TAB (X30) [Suspect]
     Active Substance: IMATINIB
     Dosage: THERAPY START DATE:  4/19/2019
  2. HYDROCHLORTHIAZIDE [Concomitant]
     Active Substance: HYDROCHLOROTHIAZIDE
  3. GABAPENTIN. [Concomitant]
     Active Substance: GABAPENTIN
  4. SERTRALINE [Concomitant]
     Active Substance: SERTRALINE HYDROCHLORIDE

REACTIONS (2)
  - Pericardial effusion [None]
  - Stent placement [None]

NARRATIVE: CASE EVENT DATE: 20190413
